FAERS Safety Report 6091664-8 (Version None)
Quarter: 2009Q1

REPORT INFORMATION
  Report Type: 
  Country: None (occurrence: None)
  Receive Date: 20090225
  Receipt Date: 20080328
  Transmission Date: 20090719
  Serious: No
  Sender: FDA-Public Use
  Company Number: A0718079A

PATIENT
  Age: 33 Year
  Sex: Female

DRUGS (3)
  1. VALTREX [Suspect]
     Indication: GENITAL HERPES
     Dosage: 500MG PER DAY
     Route: 048
     Dates: start: 20080212
  2. DIFLUCAN [Concomitant]
  3. BENADRYL [Concomitant]

REACTIONS (3)
  - FUNGAL INFECTION [None]
  - HYPERSENSITIVITY [None]
  - PRURITUS GENERALISED [None]
